FAERS Safety Report 15107000 (Version 1)
Quarter: 2018Q3

REPORT INFORMATION
  Report Type: Spontaneous
  Country: US (occurrence: US)
  Receive Date: 20180704
  Receipt Date: 20180704
  Transmission Date: 20181010
  Serious: Yes (Hospitalization, Other)
  Sender: FDA-Public Use
  Company Number: US-AMGEN-USASP2018087358

PATIENT
  Age: 68 Year
  Sex: Female

DRUGS (1)
  1. SENSIPAR [Suspect]
     Active Substance: CINACALCET HYDROCHLORIDE
     Indication: BLOOD CALCIUM ABNORMAL
     Dosage: 30 MG, BID
     Route: 065
     Dates: start: 2016

REACTIONS (1)
  - Renal transplant [Unknown]

NARRATIVE: CASE EVENT DATE: 2017
